FAERS Safety Report 23267044 (Version 2)
Quarter: 2024Q1

REPORT INFORMATION
  Report Type: Spontaneous
  Country: SK (occurrence: SK)
  Receive Date: 20231206
  Receipt Date: 20240110
  Transmission Date: 20240409
  Serious: Yes (Death, Hospitalization, Other)
  Sender: FDA-Public Use
  Company Number: SK-Merck Healthcare KGaA-2023492284

PATIENT
  Age: 72 Year
  Sex: Female

DRUGS (1)
  1. AVELUMAB [Suspect]
     Active Substance: AVELUMAB
     Indication: Transitional cell carcinoma
     Route: 042
     Dates: start: 20230731

REACTIONS (6)
  - Urosepsis [Fatal]
  - Disease progression [Fatal]
  - Genital haemorrhage [Fatal]
  - Endotoxic shock [Unknown]
  - Erythema [Recovering/Resolving]
  - Pruritus [Recovering/Resolving]

NARRATIVE: CASE EVENT DATE: 20230815
